FAERS Safety Report 10368869 (Version 1)
Quarter: 2014Q3

REPORT INFORMATION
  Report Type: Spontaneous
  Country: CH (occurrence: CH)
  Receive Date: 20140807
  Receipt Date: 20140807
  Transmission Date: 20150326
  Serious: Yes (Life-Threatening)
  Sender: FDA-Public Use
  Company Number: CH-TEVA-498455ISR

PATIENT
  Age: 36 Year
  Sex: Male

DRUGS (18)
  1. NOXAFIL [Interacting]
     Active Substance: POSACONAZOLE
     Indication: CEREBRAL ASPERGILLOSIS
     Dosage: 800 MILLIGRAM DAILY;
     Route: 048
     Dates: start: 20131210, end: 20131225
  2. SPRYCEL [Interacting]
     Active Substance: DASATINIB
     Indication: ACUTE LYMPHOCYTIC LEUKAEMIA
     Dosage: 40 MILLIGRAM DAILY;
     Route: 048
     Dates: start: 20131126
  3. URSOFALK [Concomitant]
     Active Substance: URSODIOL
     Dosage: 600 MILLIGRAM DAILY;
     Route: 048
  4. BACTRIM [Concomitant]
     Active Substance: SULFAMETHOXAZOLE\TRIMETHOPRIM
     Indication: PROPHYLAXIS
     Dosage: DOSE REPORTED AS 160MG, 1 DF = 800MG SULFOMETHOXAZOL + 160MG TRIMETHOPRIM
     Route: 048
  5. TRAMAL [Concomitant]
     Active Substance: TRAMADOL
     Dosage: 50 MILLIGRAM DAILY;
     Route: 048
  6. ZOFRAN [Interacting]
     Active Substance: ONDANSETRON HYDROCHLORIDE
     Dosage: 12 MILLIGRAM DAILY;
     Route: 048
     Dates: start: 20131218, end: 20131224
  7. AUGMENTIN [Concomitant]
     Active Substance: AMOXICILLIN\CLAVULANATE POTASSIUM
     Dosage: 3 DOSAGE FORMS DAILY; 1 DF = 1G AMOXICILLIN SODIUM + 200MG CLAVULANATE POTASSIUM
     Route: 040
     Dates: start: 20131218
  8. STILNOX [Concomitant]
     Active Substance: ZOLPIDEM TARTRATE
     Dosage: 10 MILLIGRAM DAILY;
     Route: 048
  9. VINCRISTINE [Suspect]
     Active Substance: VINCRISTINE
     Indication: ACUTE LYMPHOCYTIC LEUKAEMIA
     Dosage: 2 MILLIGRAM DAILY;
     Route: 040
     Dates: start: 20131126
  10. ZANTAC [Concomitant]
     Active Substance: RANITIDINE HYDROCHLORIDE
     Dosage: 300 MILLIGRAM DAILY;
     Route: 048
  11. ULCOGANT [Concomitant]
     Active Substance: SUCRALFATE
     Dosage: 1 GRAM DAILY;
     Route: 048
  12. HEPARIN [Concomitant]
     Active Substance: HEPARIN SODIUM
     Dosage: 10 KU DAILY;
     Route: 041
  13. VALTREX [Concomitant]
     Active Substance: VALACYCLOVIR HYDROCHLORIDE
     Indication: PROPHYLAXIS
     Dosage: 500 MILLIGRAM DAILY;
     Route: 048
     Dates: start: 20131126
  14. VANCOCIN [Concomitant]
     Active Substance: VANCOMYCIN HYDROCHLORIDE
     Dosage: 500 MILLIGRAM DAILY;
     Route: 048
  15. VI DE3 [Concomitant]
     Dosage: 1 KU DAILY;
     Route: 048
  16. MAGNESIUM [Concomitant]
     Active Substance: MAGNESIUM
     Dosage: 16 MILLIMOL DAILY;
     Route: 040
  17. STABICILLINE [Concomitant]
     Indication: PROPHYLAXIS
     Dosage: 1 MU DAILY;
     Route: 048
     Dates: start: 20131126
  18. SODIUM CHLORIDE 0.9% [Concomitant]
     Active Substance: SODIUM CHLORIDE
     Route: 041

REACTIONS (2)
  - Ileus paralytic [Recovered/Resolved]
  - Drug interaction [Unknown]

NARRATIVE: CASE EVENT DATE: 20131224
